FAERS Safety Report 21260305 (Version 3)
Quarter: 2023Q1

REPORT INFORMATION
  Report Type: Spontaneous
  Country: US (occurrence: US)
  Receive Date: 20220826
  Receipt Date: 20230118
  Transmission Date: 20230418
  Serious: Yes (Hospitalization)
  Sender: FDA-Public Use
  Company Number: US-AMGEN-USASP2022141911

PATIENT
  Age: 13 Year
  Sex: Female

DRUGS (5)
  1. NPLATE [Suspect]
     Active Substance: ROMIPLOSTIM
     Indication: Immune thrombocytopenia
     Dosage: 466.8 MICROGRAM ( 10 MICROGRAM/KG )
     Route: 058
     Dates: start: 20200928
  2. AMITRIPTYLINE HYDROCHLORIDE [Concomitant]
     Active Substance: AMITRIPTYLINE HYDROCHLORIDE
  3. SUMATRIPTAN [Concomitant]
     Active Substance: SUMATRIPTAN
  4. AMICAR [Concomitant]
     Active Substance: AMINOCAPROIC ACID
  5. MELATONIN [Concomitant]
     Active Substance: MELATONIN

REACTIONS (2)
  - Migraine [Recovering/Resolving]
  - Drug ineffective [Unknown]
